FAERS Safety Report 23161326 (Version 1)
Quarter: 2023Q4

REPORT INFORMATION
  Report Type: Spontaneous
  Country: US (occurrence: US)
  Receive Date: 20231108
  Receipt Date: 20231108
  Transmission Date: 20240110
  Serious: No
  Sender: FDA-Public Use
  Company Number: US-Santen Inc-2023-USA-010276

PATIENT
  Age: 53 Year
  Sex: Female

DRUGS (1)
  1. NATACYN [Suspect]
     Active Substance: NATAMYCIN
     Indication: Fungal infection
     Route: 047

REACTIONS (4)
  - Eye discharge [Unknown]
  - Vision blurred [Unknown]
  - Foreign body sensation in eyes [Unknown]
  - Product dispensing issue [Unknown]

NARRATIVE: CASE EVENT DATE: 20231011
